FAERS Safety Report 15481887 (Version 8)
Quarter: 2018Q4

REPORT INFORMATION
  Report Type: Spontaneous
  Country: FR (occurrence: FR)
  Receive Date: 20181010
  Receipt Date: 20181205
  Transmission Date: 20190205
  Serious: Yes (Other)
  Sender: FDA-Public Use
  Company Number: FR-GLAXOSMITHKLINE-FR2018179483

PATIENT
  Age: 32 Year
  Sex: Female
  Weight: 47 kg

DRUGS (11)
  1. DUPIXENT [Suspect]
     Active Substance: DUPILUMAB
     Indication: DERMATITIS ATOPIC
     Dosage: CYCLICAL
     Route: 058
     Dates: start: 20171120, end: 20180409
  2. ZYRTEC [Suspect]
     Active Substance: CETIRIZINE HYDROCHLORIDE
     Indication: DERMATITIS ATOPIC
     Dosage: 1 DF (ORODISPERSIBLE TABLET)
     Route: 048
     Dates: start: 2017
  3. VALACICLOVIR [Suspect]
     Active Substance: VALACYCLOVIR HYDROCHLORIDE
     Indication: HERPES SIMPLEX
     Dosage: 1000 MG, ONCE DAILY (QD)
     Route: 048
     Dates: start: 2017
  4. MONURIL [Concomitant]
     Active Substance: FOSFOMYCIN TROMETHAMINE
     Indication: URINARY TRACT INFECTION
     Dosage: 1 DF, UNK
     Route: 048
  5. FURADANTINE [Concomitant]
     Active Substance: NITROFURANTOIN
     Indication: URINARY TRACT INFECTION
     Dosage: 3 DF, QD
     Route: 048
     Dates: start: 20180517, end: 20180522
  6. MONAZOL [Concomitant]
     Active Substance: SERTACONAZOLE NITRATE
     Route: 067
  7. IBUPROFENE [Suspect]
     Active Substance: IBUPROFEN
     Indication: URINARY TRACT INFECTION
     Dosage: UNK
     Route: 048
     Dates: start: 20180517
  8. MONAZOL [Concomitant]
     Active Substance: SERTACONAZOLE NITRATE
     Indication: CANDIDA INFECTION
     Dosage: 1 DF, UNK
     Route: 067
     Dates: start: 20180516, end: 20180516
  9. VALACICLOVIR [Suspect]
     Active Substance: VALACYCLOVIR HYDROCHLORIDE
     Dosage: 500 MG, ONCE DAILY (QD)
     Route: 048
     Dates: start: 2017
  10. NAABAK (SPAGLUMIC ACID) [Suspect]
     Active Substance: SPAGLUMIC ACID
     Indication: CONJUNCTIVITIS
     Dosage: UNK
     Route: 047
     Dates: start: 2017
  11. MONURIL [Concomitant]
     Active Substance: FOSFOMYCIN TROMETHAMINE
     Indication: URINARY TRACT INFECTION
     Dosage: 1 DF, UNK
     Route: 048
     Dates: start: 20180517

REACTIONS (4)
  - Abortion spontaneous [Recovered/Resolved]
  - Pregnancy [Unknown]
  - Maternal exposure during pregnancy [Unknown]
  - Maternal exposure before pregnancy [Unknown]

NARRATIVE: CASE EVENT DATE: 201804
